FAERS Safety Report 7994432-2 (Version None)
Quarter: 2011Q4

REPORT INFORMATION
  Report Type: 
  Country: None (occurrence: None)
  Receive Date: 20111220
  Receipt Date: 20111025
  Transmission Date: 20120403
  Serious: Yes (Other)
  Sender: FDA-Public Use
  Company Number: US-NAPPMUNDI-USA-2011-0079786

PATIENT
  Sex: Male

DRUGS (4)
  1. OXYCONTIN [Suspect]
     Indication: ARTHRITIS
     Dosage: UNK
  2. OXYCONTIN [Suspect]
     Indication: FUNCTIONAL GASTROINTESTINAL DISORDER
  3. OXYCONTIN [Suspect]
     Indication: LUNG DISORDER
  4. OXYCONTIN [Suspect]
     Indication: ORTHOSIS USER

REACTIONS (1)
  - SUICIDAL IDEATION [None]
